FAERS Safety Report 13784618 (Version 1)
Quarter: 2017Q3

REPORT INFORMATION
  Report Type: Spontaneous
  Country: US (occurrence: US)
  Receive Date: 20170724
  Receipt Date: 20170724
  Transmission Date: 20171127
  Serious: Yes (Hospitalization)
  Sender: FDA-Public Use
  Company Number: None

PATIENT
  Sex: Male
  Weight: 58 kg

DRUGS (15)
  1. FENTANYL. [Concomitant]
     Active Substance: FENTANYL
  2. MULTIVITAMIN [Concomitant]
     Active Substance: VITAMINS
  3. POTASSIUM CHLORIDE. [Concomitant]
     Active Substance: POTASSIUM CHLORIDE
  4. SODIUM CHLORIDE. [Concomitant]
     Active Substance: SODIUM CHLORIDE
  5. XARELTO [Concomitant]
     Active Substance: RIVAROXABAN
  6. OXYCODONE [Concomitant]
     Active Substance: OXYCODONE
  7. ANCEF [Concomitant]
     Active Substance: CEFAZOLIN SODIUM
  8. ROPIVACAINE+EPINEPHRINE [Concomitant]
  9. TAMSULOSIN [Concomitant]
     Active Substance: TAMSULOSIN
  10. MORPHINE [Concomitant]
     Active Substance: MORPHINE
  11. HARVONI [Suspect]
     Active Substance: LEDIPASVIR\SOFOSBUVIR
     Indication: HEPATITIS C
     Dosage: 90/400MG DAILY PO
     Route: 048
     Dates: start: 20170422
  12. ASPIRIN. [Concomitant]
     Active Substance: ASPIRIN
  13. PROTONIX [Concomitant]
     Active Substance: PANTOPRAZOLE SODIUM
  14. LOVENOX [Concomitant]
     Active Substance: ENOXAPARIN SODIUM
  15. ZOFRAN [Concomitant]
     Active Substance: ONDANSETRON HYDROCHLORIDE

REACTIONS (3)
  - Fall [None]
  - Head injury [None]
  - Hip fracture [None]

NARRATIVE: CASE EVENT DATE: 20170712
